FAERS Safety Report 19493966 (Version 1)
Quarter: 2021Q3

REPORT INFORMATION
  Report Type: Spontaneous
  Country: US (occurrence: US)
  Receive Date: 20210705
  Receipt Date: 20210705
  Transmission Date: 20211014
  Serious: No
  Sender: FDA-Public Use
  Company Number: US-GLAXOSMITHKLINE-US2021139693

PATIENT
  Sex: Female

DRUGS (1)
  1. BENLYSTA [Suspect]
     Active Substance: BELIMUMAB
     Indication: PRODUCT USED FOR UNKNOWN INDICATION
     Dosage: 200 MG, WE
     Dates: start: 20210524

REACTIONS (8)
  - Headache [Unknown]
  - Anxiety [Unknown]
  - Condition aggravated [Unknown]
  - Panic attack [Unknown]
  - Abdominal pain upper [Unknown]
  - Nasal congestion [Unknown]
  - Chest pain [Unknown]
  - Insomnia [Unknown]
